FAERS Safety Report 19941439 (Version 1)
Quarter: 2021Q4

REPORT INFORMATION
  Report Type: Spontaneous
  Country: KR (occurrence: KR)
  Receive Date: 20211012
  Receipt Date: 20211012
  Transmission Date: 20220303
  Serious: Yes (Other)
  Sender: FDA-Public Use
  Company Number: KR-LUPIN PHARMACEUTICALS INC.-2021-19111

PATIENT
  Age: 35 Year
  Sex: Female

DRUGS (4)
  1. METHYLPREDNISOLONE [Suspect]
     Active Substance: METHYLPREDNISOLONE
     Indication: Encephalitis autoimmune
     Dosage: 1000 MG, SIRT REGIMEN; FIRST-LINE IMMUNOTHERAPY
     Route: 042
  2. HUMAN IMMUNOGLOBULIN G [Suspect]
     Active Substance: HUMAN IMMUNOGLOBULIN G
     Indication: Encephalitis autoimmune
     Dosage: SIRT REGIMEN; FIRST-LINE IMMUNOTHERAPY; DURING DAY 2-5 PER CYCLE
     Route: 042
  3. RITUXIMAB [Suspect]
     Active Substance: RITUXIMAB
     Indication: Encephalitis autoimmune
     Dosage: 375 MILLIGRAM/SQ. METER SIRT REGIMEN; SECOND-LINE IMMUNOTHERAPY; FOR 4 CYCLES, WEEKLY
     Route: 065
  4. TOCILIZUMAB [Suspect]
     Active Substance: TOCILIZUMAB
     Indication: Encephalitis autoimmune
     Dosage: UNK SIRT REGIMEN; NEXT-LINE IMMUNOTHERAPY; RECEIVED FOUR CYCLES
     Route: 065

REACTIONS (1)
  - Neutropenia [Unknown]
